FAERS Safety Report 12168876 (Version 2)
Quarter: 2016Q1

REPORT INFORMATION
  Report Type: Spontaneous
  Country: TW (occurrence: TW)
  Receive Date: 20160310
  Receipt Date: 20160311
  Transmission Date: 20160526
  Serious: Yes (Other)
  Sender: FDA-Public Use
  Company Number: TW-PFIZER INC-2016141854

PATIENT
  Age: 54 Year
  Sex: Female

DRUGS (4)
  1. COLCHICINE. [Interacting]
     Active Substance: COLCHICINE
     Indication: GOUTY ARTHRITIS
     Dosage: 0.6 MG, ONCE OR TWICE DAILY FOR 8 MONTHS
     Route: 048
  2. COLCHICINE. [Interacting]
     Active Substance: COLCHICINE
     Dosage: 0.6 MG, 2X/DAY
     Route: 048
  3. FLUCONAZOLE. [Suspect]
     Active Substance: FLUCONAZOLE
     Indication: FUNGAL CYSTITIS
     Dosage: 100 MG, 1X/DAY
     Route: 048
  4. COLCHICINE. [Interacting]
     Active Substance: COLCHICINE
     Dosage: 0.9 MG, 1X/DAY
     Route: 048

REACTIONS (2)
  - Neuromyopathy [Recovering/Resolving]
  - Drug interaction [Recovering/Resolving]
